FAERS Safety Report 6072550-6 (Version None)
Quarter: 2009Q1

REPORT INFORMATION
  Report Type: 
  Country: None (occurrence: None)
  Receive Date: 20090210
  Receipt Date: 20090202
  Transmission Date: 20090719
  Serious: Yes (Disabling, Other)
  Sender: FDA-Public Use
  Company Number: BR-AVENTIS-200813132GDDC

PATIENT
  Age: 9 Year
  Sex: Female
  Weight: 26 kg

DRUGS (9)
  1. LANTUS [Suspect]
     Route: 058
     Dates: start: 20070801
  2. LANTUS [Suspect]
     Route: 058
     Dates: start: 20080320
  3. LANTUS [Suspect]
     Route: 058
  4. LANTUS [Suspect]
     Route: 058
     Dates: start: 20080421, end: 20080421
  5. LANTUS [Suspect]
     Dosage: DOSE: UNK
     Route: 058
  6. LANTUS [Suspect]
     Route: 058
  7. INSULIN LISPRO [Concomitant]
     Dosage: DOSE: ACCORDING TO CARBOHYDRATE COUNTER
     Route: 058
     Dates: start: 20070801
  8. HUMULIN N [Concomitant]
     Route: 058
     Dates: start: 20070801
  9. MULTIVITAMINS, COMBINATIONS [Concomitant]

REACTIONS (9)
  - ARTHRALGIA [None]
  - BLOOD GLUCOSE FLUCTUATION [None]
  - CONVULSION [None]
  - HYPERGLYCAEMIA [None]
  - HYPOGLYCAEMIA [None]
  - LIGAMENT CALCIFICATION [None]
  - MEMORY IMPAIRMENT [None]
  - MUSCULOSKELETAL STIFFNESS [None]
  - SOMNOLENCE [None]
